FAERS Safety Report 24131094 (Version 1)
Quarter: 2024Q3

REPORT INFORMATION
  Report Type: Spontaneous
  Country: US (occurrence: None)
  Receive Date: 20240724
  Receipt Date: 20240724
  Transmission Date: 20241017
  Serious: No
  Sender: ASTRAZENECA
  Company Number: 2024A165565

PATIENT
  Sex: Female
  Weight: 53 kg

DRUGS (1)
  1. BYDUREON BCISE [Suspect]
     Active Substance: EXENATIDE

REACTIONS (9)
  - Illness [Unknown]
  - Heart rate increased [Unknown]
  - Gastritis [Unknown]
  - Eating disorder [Unknown]
  - Feeling abnormal [Unknown]
  - Vomiting [Unknown]
  - Diarrhoea [Unknown]
  - Abdominal pain upper [Unknown]
  - Weight decreased [Unknown]
